FAERS Safety Report 7371084-6 (Version None)
Quarter: 2011Q1

REPORT INFORMATION
  Report Type: 
  Country: None (occurrence: None)
  Receive Date: 20110318
  Receipt Date: 20110318
  Transmission Date: 20110831
  Serious: Yes (Life-Threatening, Hospitalization)
  Sender: FDA-Public Use
  Company Number: None

PATIENT
  Age: 23 Year
  Sex: Male

DRUGS (4)
  1. DIPHENHYDRAINE [Concomitant]
  2. HALOPERIDOL LACTATE [Suspect]
     Indication: AGITATION
     Dosage: 10 MG STAT IM
     Route: 030
     Dates: start: 20110103, end: 20110103
  3. HALOPERIDOL LACTATE [Suspect]
     Indication: AGGRESSION
     Dosage: 10 MG STAT IM
     Route: 030
     Dates: start: 20110103, end: 20110103
  4. LORAZEPAM [Concomitant]

REACTIONS (1)
  - UNRESPONSIVE TO STIMULI [None]
